FAERS Safety Report 19928111 (Version 1)
Quarter: 2021Q4

REPORT INFORMATION
  Report Type: Spontaneous
  Country: US (occurrence: US)
  Receive Date: 20211006
  Receipt Date: 20211006
  Transmission Date: 20220303
  Serious: No
  Sender: FDA-Public Use
  Company Number: None

PATIENT
  Age: 47 Year
  Sex: Female
  Weight: 51.75 kg

DRUGS (1)
  1. COPPERTONE SPORT MINERAL SUNSCREEN SPF 50 [Suspect]
     Active Substance: ZINC OXIDE
     Indication: Prophylaxis against solar radiation
     Dates: start: 20210809, end: 20210812

REACTIONS (2)
  - Rash [None]
  - Blister [None]

NARRATIVE: CASE EVENT DATE: 20210811
